FAERS Safety Report 10159201 (Version 2)
Quarter: 2014Q2

REPORT INFORMATION
  Report Type: Spontaneous
  Country: FR (occurrence: None)
  Receive Date: 20140506
  Receipt Date: 20140530
  Transmission Date: 20141212
  Serious: Yes (Other)
  Sender: FDA-Public Use
  Company Number: 2014SA033824

PATIENT
  Age: 52 Year
  Sex: Male

DRUGS (1)
  1. NASACORT [Suspect]
     Indication: POLYP
     Dosage: NASAL
     Route: 045
     Dates: end: 2000

REACTIONS (1)
  - Retinal pigment epitheliopathy [None]
